FAERS Safety Report 23001865 (Version 4)
Quarter: 2024Q2

REPORT INFORMATION
  Report Type: Spontaneous
  Country: JP (occurrence: JP)
  Receive Date: 20230928
  Receipt Date: 20240418
  Transmission Date: 20240716
  Serious: Yes (Life-Threatening, Hospitalization, Other)
  Sender: FDA-Public Use
  Company Number: JP-BRISTOL-MYERS SQUIBB COMPANY-2023-136945

PATIENT
  Age: 62 Year
  Sex: Female
  Weight: 48.0 kg

DRUGS (4)
  1. YERVOY [Suspect]
     Active Substance: IPILIMUMAB
     Indication: Renal cell carcinoma
     Dosage: 51.15
     Route: 041
     Dates: start: 20230712, end: 20230712
  2. YERVOY [Suspect]
     Active Substance: IPILIMUMAB
     Dosage: 51.15
     Route: 041
     Dates: start: 20230816, end: 20230816
  3. OPDIVO [Suspect]
     Active Substance: NIVOLUMAB
     Indication: Renal cell carcinoma
     Route: 041
     Dates: start: 20230712, end: 20230712
  4. OPDIVO [Suspect]
     Active Substance: NIVOLUMAB
     Route: 041
     Dates: start: 20230816, end: 20230816

REACTIONS (5)
  - Encephalitis [Recovering/Resolving]
  - Off label use [Unknown]
  - Hallucination, visual [Unknown]
  - Speech disorder [Unknown]
  - Seizure [Unknown]

NARRATIVE: CASE EVENT DATE: 20230816
